FAERS Safety Report 9146286 (Version 3)
Quarter: 2013Q2

REPORT INFORMATION
  Report Type: Report from Study
  Country: GB (occurrence: GB)
  Receive Date: 20130307
  Receipt Date: 20130430
  Transmission Date: 20140414
  Serious: Yes (Other)
  Sender: FDA-Public Use
  Company Number: GB-ASTELLAS-2013US002448

PATIENT
  Age: 68 Year
  Sex: Male
  Weight: 96 kg

DRUGS (10)
  1. BLINDED ENZALUTAMIDE [Suspect]
     Indication: PROSTATE CANCER METASTATIC
     Dosage: 160 MG, UID/QD
     Route: 048
     Dates: start: 20130211, end: 20130221
  2. BLINDED ENZALUTAMIDE [Suspect]
     Dosage: 160 MG, UID/QD
     Route: 048
     Dates: start: 20130410
  3. FLOMAX MR [Concomitant]
     Indication: PRODUCT USED FOR UNKNOWN INDICATION
     Dosage: 400 MG, UID/QD
     Route: 048
     Dates: start: 20110608
  4. CLOPIDOGREL [Concomitant]
     Indication: ANTICOAGULANT THERAPY
     Dosage: 75 MG, UID/QD
     Route: 048
     Dates: start: 20110913
  5. SIMVASTATIN [Concomitant]
     Indication: BLOOD CHOLESTEROL
     Dosage: 20 MG, UID/QD
     Route: 048
     Dates: start: 20120124
  6. OXYCODONE [Concomitant]
     Indication: ANALGESIC THERAPY
     Dosage: 5 MG, UID/QD
     Route: 048
     Dates: start: 20101004
  7. GLUCOSAMINE [Concomitant]
     Indication: ARTHRITIS
     Dosage: 500 MG, UID/QD
     Route: 048
  8. CHONDROITIN [Concomitant]
     Indication: ARTHRITIS
     Dosage: 525 MG, UID/QD
     Route: 048
  9. COD LIVER OIL [Concomitant]
     Indication: ARTHRITIS
     Dosage: 1000 MG, UID/QD
     Route: 048
  10. OMEGA 3 FISH OIL [Concomitant]
     Indication: ARTHRITIS
     Dosage: 1000 MG, UID/QD
     Route: 048

REACTIONS (1)
  - Liver function test abnormal [Recovered/Resolved]
